FAERS Safety Report 5662042-8 (Version None)
Quarter: 2008Q1

REPORT INFORMATION
  Report Type: 
  Country: None (occurrence: None)
  Receive Date: 20080312
  Receipt Date: 20080303
  Transmission Date: 20080703
  Serious: Yes (Hospitalization, Other)
  Sender: FDA-Public Use
  Company Number: US-ELI_LILLY_AND_COMPANY-US200803000332

PATIENT
  Sex: Male

DRUGS (11)
  1. ZYPREXA [Suspect]
     Indication: DEPRESSION
     Dosage: 10 MG, 4/D
     Dates: start: 19970101
  2. ZYPREXA [Suspect]
     Dosage: 20 MG, 4/D
  3. ZYPREXA [Suspect]
     Dosage: 30 MG, 4/D
  4. SEROQUEL [Concomitant]
  5. PAXIL [Concomitant]
  6. GEODON [Concomitant]
  7. DEPAKOTE [Concomitant]
  8. AMBIEN [Concomitant]
  9. HALOPERIDOL [Concomitant]
  10. RISPERDAL [Concomitant]
  11. NITROGLYCERIN [Concomitant]

REACTIONS (5)
  - DIABETES MELLITUS [None]
  - DIABETIC COMA [None]
  - HYPERGLYCAEMIA [None]
  - LEUKAEMIA [None]
  - MYOCARDIAL INFARCTION [None]
